APPROVED DRUG PRODUCT: OSPEMIFENE
Active Ingredient: OSPEMIFENE
Strength: 60MG
Dosage Form/Route: TABLET;ORAL
Application: A215574 | Product #001
Applicant: HETERO LABS LTD UNIT V
Approved: Feb 13, 2024 | RLD: No | RS: No | Type: DISCN